FAERS Safety Report 11208912 (Version 1)
Quarter: 2015Q2

REPORT INFORMATION
  Report Type: Spontaneous
  Country: FR (occurrence: FR)
  Receive Date: 20150622
  Receipt Date: 20150622
  Transmission Date: 20150821
  Serious: Yes (Hospitalization, Other)
  Sender: FDA-Public Use
  Company Number: FR-ELI_LILLY_AND_COMPANY-FR201506003565

PATIENT
  Age: 78 Year
  Sex: Female

DRUGS (6)
  1. XANAX [Concomitant]
     Active Substance: ALPRAZOLAM
  2. CORTANCYL [Concomitant]
     Active Substance: PREDNISONE
     Dosage: 40 MG, QD
  3. IMOVANE [Concomitant]
     Active Substance: ZOPICLONE
  4. PRADAXA [Concomitant]
     Active Substance: DABIGATRAN ETEXILATE MESYLATE
  5. CYMBALTA [Suspect]
     Active Substance: DULOXETINE HYDROCHLORIDE
     Indication: PRODUCT USED FOR UNKNOWN INDICATION
     Dosage: 60 MG, QD
     Route: 048
     Dates: start: 20141117, end: 20141204
  6. CLOMIPRAMINE [Concomitant]
     Active Substance: CLOMIPRAMINE
     Dosage: UNK
     Dates: start: 20140910

REACTIONS (4)
  - Haemangioma of liver [Unknown]
  - Blood albumin decreased [Unknown]
  - Hepatitis cholestatic [Recovered/Resolved]
  - Blood creatine decreased [Unknown]

NARRATIVE: CASE EVENT DATE: 20141127
